FAERS Safety Report 6087848-5 (Version None)
Quarter: 2009Q1

REPORT INFORMATION
  Report Type: 
  Country: None (occurrence: None)
  Receive Date: 20090223
  Receipt Date: 20090213
  Transmission Date: 20090719
  Serious: Yes (Hospitalization, Other)
  Sender: FDA-Public Use
  Company Number: FR-GILEAD-2008-0019132

PATIENT
  Sex: Male

DRUGS (15)
  1. VISTIDE [Suspect]
     Indication: CYTOMEGALOVIRUS COLITIS
     Route: 042
     Dates: start: 20080814, end: 20081023
  2. TRUVADA [Suspect]
     Indication: HIV INFECTION
     Route: 048
     Dates: start: 20071215, end: 20081227
  3. SEROPRAM [Concomitant]
  4. NORVIR [Concomitant]
     Indication: HIV INFECTION
     Route: 048
  5. PREZISTA [Concomitant]
     Indication: HIV INFECTION
  6. ZECLAR [Concomitant]
     Indication: ATYPICAL MYCOBACTERIAL INFECTION
     Route: 048
  7. ANSATIPINE [Concomitant]
     Indication: ATYPICAL MYCOBACTERIAL INFECTION
     Route: 048
     Dates: start: 20080118, end: 20081227
  8. MYAMBUTOL [Concomitant]
     Indication: ATYPICAL MYCOBACTERIAL INFECTION
     Route: 048
     Dates: start: 20080116
  9. BACTRIM DS [Concomitant]
     Indication: PROPHYLAXIS
     Route: 048
     Dates: start: 20071215
  10. LEDERFOLINE [Concomitant]
  11. SERESTA [Concomitant]
  12. NOCTAMIDE [Concomitant]
  13. CALCIUM FOLINATE [Concomitant]
  14. OXAZEPAM [Concomitant]
  15. LORMETAZEPAM [Concomitant]

REACTIONS (4)
  - FANCONI SYNDROME ACQUIRED [None]
  - NEUTROPENIA [None]
  - RENAL FAILURE [None]
  - RENAL TUBULAR DISORDER [None]
